FAERS Safety Report 21273682 (Version 3)
Quarter: 2022Q3

REPORT INFORMATION
  Report Type: Report from Study
  Country: CO (occurrence: CO)
  Receive Date: 20220831
  Receipt Date: 20220926
  Transmission Date: 20221027
  Serious: Yes (Other)
  Sender: FDA-Public Use
  Company Number: CO-BAYER-2022A121486

PATIENT
  Age: 71 Year
  Sex: Female

DRUGS (11)
  1. EYLEA [Suspect]
     Active Substance: AFLIBERCEPT
     Indication: Diabetic retinal oedema
     Dosage: UNK, ONCE, BOTH EYES; SOLUTION FOR INJECTION; 40MG/ML
     Dates: start: 20210310, end: 20210310
  2. EYLEA [Suspect]
     Active Substance: AFLIBERCEPT
     Dosage: UNK, ONCE, LEFT EYE ; SOLUTION FOR INJECTION; 40MG/ML
     Dates: start: 20210415, end: 20210415
  3. EYLEA [Suspect]
     Active Substance: AFLIBERCEPT
     Dosage: UNK, ONCE, LEFT EYE ; SOLUTION FOR INJECTION; 40MG/ML
     Dates: start: 20210526, end: 20210526
  4. EYLEA [Suspect]
     Active Substance: AFLIBERCEPT
     Dosage: UNK, ONCE, BOTH EYES; SOLUTION FOR INJECTION; 40MG/ML
     Dates: start: 20210804, end: 20210804
  5. EYLEA [Suspect]
     Active Substance: AFLIBERCEPT
     Dosage: UNK, ONCE, BOTH EYES; SOLUTION FOR INJECTION; 40MG/ML
     Dates: start: 20210910, end: 20210910
  6. EYLEA [Suspect]
     Active Substance: AFLIBERCEPT
     Dosage: UNK, ONCE, BOTH EYES; SOLUTION FOR INJECTION; 40MG/ML
     Dates: start: 20211013, end: 20211013
  7. EYLEA [Suspect]
     Active Substance: AFLIBERCEPT
     Dosage: UNK, ONCE, BOTH EYES; SOLUTION FOR INJECTION; 40MG/ML
     Dates: start: 20211216, end: 20211216
  8. EYLEA [Suspect]
     Active Substance: AFLIBERCEPT
     Dosage: UNK, ONCE, RIGHT EYE; SOLUTION FOR INJECTION; 40MG/ML
     Dates: start: 20220210, end: 20220210
  9. EYLEA [Suspect]
     Active Substance: AFLIBERCEPT
     Dosage: UNK, ONCE, LEFT EYE; SOLUTION FOR INJECTION; 40MG/ML
     Dates: start: 20220303, end: 20220303
  10. EYLEA [Suspect]
     Active Substance: AFLIBERCEPT
     Dosage: UNK, ONCE, RIGHT EYE; SOLUTION FOR INJECTION; 40MG/ML
     Dates: start: 20220512, end: 20220512
  11. EYLEA [Suspect]
     Active Substance: AFLIBERCEPT
     Dosage: UNK; SOLUTION FOR INJECTION

REACTIONS (1)
  - Noninfective retinitis [Recovered/Resolved with Sequelae]

NARRATIVE: CASE EVENT DATE: 20220501
